FAERS Safety Report 10621963 (Version 5)
Quarter: 2016Q4

REPORT INFORMATION
  Report Type: Spontaneous
  Country: US (occurrence: US)
  Receive Date: 20141203
  Receipt Date: 20161202
  Transmission Date: 20170206
  Serious: Yes (Other)
  Sender: FDA-Public Use
  Company Number: US-JNJFOC-20141109672

PATIENT
  Sex: Male

DRUGS (2)
  1. RISPERIDONE. [Suspect]
     Active Substance: RISPERIDONE
     Indication: PRODUCT USED FOR UNKNOWN INDICATION
     Route: 048
  2. RISPERDAL [Suspect]
     Active Substance: RISPERIDONE
     Indication: BIPOLAR DISORDER
     Route: 048
     Dates: start: 201301, end: 201305

REACTIONS (5)
  - Abnormal weight gain [Unknown]
  - Hyperprolactinaemia [Not Recovered/Not Resolved]
  - Gynaecomastia [Unknown]
  - Galactorrhoea [Not Recovered/Not Resolved]
  - Breast pain [Unknown]
